FAERS Safety Report 8156946-4 (Version None)
Quarter: 2012Q1

REPORT INFORMATION
  Report Type: 
  Country: None (occurrence: None)
  Receive Date: 20120222
  Receipt Date: 20120214
  Transmission Date: 20120608
  Serious: Yes (Other)
  Sender: FDA-Public Use
  Company Number: CN-JNJFOC-20120208367

PATIENT
  Age: 3 Year
  Sex: Female

DRUGS (2)
  1. IBUPROFEN TABLETS [Suspect]
     Route: 048
  2. IBUPROFEN TABLETS [Suspect]
     Indication: PYREXIA
     Route: 048
     Dates: start: 20120205, end: 20120205

REACTIONS (1)
  - FEBRILE CONVULSION [None]
